FAERS Safety Report 20494378 (Version 2)
Quarter: 2022Q1

REPORT INFORMATION
  Report Type: Other
  Country: US (occurrence: None)
  Receive Date: 20220221
  Receipt Date: 20220222
  Transmission Date: 20220423
  Serious: Yes (Hospitalization, Other)
  Sender: FDA-Public Use
  Company Number: US-ROCHE-3022218

PATIENT
  Age: 63 Year
  Sex: Male

DRUGS (31)
  1. OCREVUS [Suspect]
     Active Substance: OCRELIZUMAB
     Indication: Primary progressive multiple sclerosis
     Dosage: 300MG ON DAY 1 AND DAY 15 LATER 600MG EVERY 6 MONTHS
     Route: 042
     Dates: end: 202106
  2. VALIUM [Suspect]
     Active Substance: DIAZEPAM
     Indication: Product used for unknown indication
     Route: 065
  3. TYLENOL [Concomitant]
     Active Substance: ACETAMINOPHEN
     Indication: Arthritis
  4. POTASSIUM [Concomitant]
     Active Substance: POTASSIUM
  5. LOSARTAN [Concomitant]
     Active Substance: LOSARTAN
     Indication: Blood pressure measurement
  6. CLOPIDOGREL [Concomitant]
     Active Substance: CLOPIDOGREL BISULFATE
  7. METOPROLOL [Concomitant]
     Active Substance: METOPROLOL
     Indication: Blood pressure measurement
  8. CHLORTHALIDONE [Concomitant]
     Active Substance: CHLORTHALIDONE
  9. IRON [Concomitant]
     Active Substance: IRON
  10. CALCIUM CITRATE [Concomitant]
     Active Substance: CALCIUM CITRATE
  11. SERTRALINE HYDROCHLORIDE [Concomitant]
     Active Substance: SERTRALINE HYDROCHLORIDE
     Indication: Depression
  12. AMANTADINE HYDROCHLORIDE [Concomitant]
     Active Substance: AMANTADINE HYDROCHLORIDE
  13. ALFUZOSIN [Concomitant]
     Active Substance: ALFUZOSIN
     Indication: Multiple sclerosis
  14. LEVETIRACETAM [Concomitant]
     Active Substance: LEVETIRACETAM
     Indication: Seizure
     Dates: start: 201701
  15. MYRBETRIQ [Concomitant]
     Active Substance: MIRABEGRON
  16. BUPROPION [Concomitant]
     Active Substance: BUPROPION
     Indication: Depression
  17. VITAMIN D3 [Concomitant]
     Active Substance: CHOLECALCIFEROL
     Indication: Osteogenesis imperfecta
     Dates: start: 2021
  18. MIRTAZAPINE [Concomitant]
     Active Substance: MIRTAZAPINE
  19. ATORVASTATIN [Concomitant]
     Active Substance: ATORVASTATIN
     Indication: Blood cholesterol
     Dates: start: 2021
  20. PRAVASTATIN [Concomitant]
     Active Substance: PRAVASTATIN
     Indication: Blood cholesterol
     Dates: end: 2021
  21. PANTOPRAZOLE [Concomitant]
     Active Substance: PANTOPRAZOLE
  22. OMEPRAZOLE [Concomitant]
     Active Substance: OMEPRAZOLE
  23. ALLOPURINOL [Concomitant]
     Active Substance: ALLOPURINOL
     Indication: Gout
  24. ASPIRIN [Concomitant]
     Active Substance: ASPIRIN
     Indication: Anticoagulant therapy
  25. ASPIRIN [Concomitant]
     Active Substance: ASPIRIN
  26. ALENDRONATE SODIUM [Concomitant]
     Active Substance: ALENDRONATE SODIUM
     Indication: Osteogenesis imperfecta
  27. ALBUTEROL [Concomitant]
     Active Substance: ALBUTEROL
     Indication: Pneumonia
  28. ONDANSETRON HYDROCHLORIDE [Concomitant]
     Active Substance: ONDANSETRON HYDROCHLORIDE
     Indication: Nausea
  29. CYCLOBENZAPRINE [Concomitant]
     Active Substance: CYCLOBENZAPRINE
     Indication: Muscle spasms
  30. HYDROCODONE [Concomitant]
     Active Substance: HYDROCODONE
     Dates: start: 202101
  31. LEVOTHYROXINE [Concomitant]
     Active Substance: LEVOTHYROXINE
     Indication: Thyroid cancer

REACTIONS (16)
  - Cerebrovascular accident [Unknown]
  - Pneumonia [Unknown]
  - Arterial occlusive disease [Unknown]
  - Seizure [Recovered/Resolved]
  - Progressive multiple sclerosis [Not Recovered/Not Resolved]
  - Fall [Unknown]
  - Urinary tract infection [Recovered/Resolved]
  - Thyroid cancer [Unknown]
  - Speech disorder [Not Recovered/Not Resolved]
  - Dysphagia [Unknown]
  - Drug ineffective [Unknown]
  - Spinal fracture [Unknown]
  - Cough [Unknown]
  - Panic reaction [Unknown]
  - Gastric disorder [Unknown]
  - Haematemesis [Unknown]

NARRATIVE: CASE EVENT DATE: 20170101
